FAERS Safety Report 19410697 (Version 1)
Quarter: 2021Q2

REPORT INFORMATION
  Report Type: Spontaneous
  Country: US (occurrence: US)
  Receive Date: 20210612
  Receipt Date: 20210612
  Transmission Date: 20210717
  Serious: Yes (Hospitalization)
  Sender: FDA-Public Use
  Company Number: None

PATIENT
  Age: 12 Year
  Sex: Female
  Weight: 86.6 kg

DRUGS (2)
  1. CYTARABINE 80 MG [Suspect]
     Active Substance: CYTARABINE
     Dates: end: 20200720
  2. METHOTREXATE 45MG [Suspect]
     Active Substance: METHOTREXATE
     Dates: end: 20210311

REACTIONS (3)
  - Unresponsive to stimuli [None]
  - Dizziness [None]
  - Seizure [None]

NARRATIVE: CASE EVENT DATE: 20210316
